FAERS Safety Report 9188730 (Version 2)
Quarter: 2013Q1

REPORT INFORMATION
  Report Type: Spontaneous
  Country: BR (occurrence: BR)
  Receive Date: 20130325
  Receipt Date: 20130325
  Transmission Date: 20140127
  Serious: Yes (Other)
  Sender: FDA-Public Use
  Company Number: BR-AMGEN-BRACT2011068694

PATIENT
  Age: 52 Year
  Sex: Female
  Weight: 62 kg

DRUGS (10)
  1. ENBREL [Suspect]
     Dosage: 50 MG, WEEKLY
     Route: 058
     Dates: start: 20090810
  2. ENBREL [Suspect]
     Dosage: 50 MG, 1X/WEEK
     Route: 058
  3. ENBREL [Suspect]
     Dosage: UNK
     Dates: start: 2009
  4. TORSILAX [Suspect]
     Indication: MUSCLE RELAXANT THERAPY
     Dosage: UNK
     Dates: start: 20130222
  5. NIMESULIDE [Concomitant]
     Dosage: UNK
  6. PREDNISONE [Concomitant]
     Dosage: UNK
  7. PARACETAMOL [Concomitant]
     Dosage: UNK
  8. ENALAPRIL [Concomitant]
     Dosage: UNK
  9. PAMIDRONATE DISODIUM [Concomitant]
     Dosage: UNK
  10. BECLAMIDE [Concomitant]
     Dosage: UNK

REACTIONS (9)
  - Diabetes mellitus [Unknown]
  - Hypersensitivity [Not Recovered/Not Resolved]
  - Blood pressure decreased [Unknown]
  - Toxicity to various agents [Unknown]
  - Furuncle [Not Recovered/Not Resolved]
  - Pruritus [Not Recovered/Not Resolved]
  - Scratch [Not Recovered/Not Resolved]
  - Blister [Unknown]
  - Injection site pain [Unknown]
